FAERS Safety Report 14214849 (Version 2)
Quarter: 2018Q1

REPORT INFORMATION
  Report Type: Spontaneous
  Country: US (occurrence: US)
  Receive Date: 20171122
  Receipt Date: 20180308
  Transmission Date: 20180508
  Serious: No
  Sender: FDA-Public Use
  Company Number: US-JNJFOC-20170923506

PATIENT
  Age: 22 Year
  Sex: Female

DRUGS (2)
  1. HALDOL [Suspect]
     Active Substance: HALOPERIDOL
     Indication: PRODUCT USED FOR UNKNOWN INDICATION
     Route: 065
     Dates: start: 201708
  2. NALTREXONE [Suspect]
     Active Substance: NALTREXONE
     Indication: DRUG DEPENDENCE
     Route: 030
     Dates: start: 20170805

REACTIONS (1)
  - Hallucination [Unknown]

NARRATIVE: CASE EVENT DATE: 201708
